FAERS Safety Report 22918771 (Version 3)
Quarter: 2023Q4

REPORT INFORMATION
  Report Type: Report from Study
  Country: IL (occurrence: IL)
  Receive Date: 20230907
  Receipt Date: 20231117
  Transmission Date: 20240110
  Serious: Yes (Hospitalization)
  Sender: FDA-Public Use
  Company Number: IL-ABBVIE-5396201

PATIENT
  Sex: Female

DRUGS (2)
  1. CARBIDOPA\LEVODOPA [Suspect]
     Active Substance: CARBIDOPA\LEVODOPA
     Indication: Parkinson^s disease
     Dosage: CONTINUOUS DOSE 1.2ML/HOUR, EXTRA DOSE 1ML
     Route: 050
  2. CARBIDOPA\LEVODOPA [Suspect]
     Active Substance: CARBIDOPA\LEVODOPA
     Route: 050
     Dates: start: 20201108

REACTIONS (7)
  - Hepatic neoplasm [Unknown]
  - Device dislocation [Unknown]
  - Bezoar [Recovered/Resolved]
  - Device dislocation [Recovered/Resolved]
  - Intestinal ulcer [Recovering/Resolving]
  - Gastrointestinal examination abnormal [Recovering/Resolving]
  - Decubitus ulcer [Recovering/Resolving]
